FAERS Safety Report 13953762 (Version 1)
Quarter: 2017Q3

REPORT INFORMATION
  Report Type: Spontaneous
  Country: US (occurrence: US)
  Receive Date: 20170908
  Receipt Date: 20170908
  Transmission Date: 20171128
  Serious: Yes (Other)
  Sender: FDA-Public Use
  Company Number: None

PATIENT
  Age: 70 Year
  Sex: Male
  Weight: 101.25 kg

DRUGS (11)
  1. SIMVASTATIN. [Concomitant]
     Active Substance: SIMVASTATIN
  2. OLMESARTAN/HCTZ [Suspect]
     Active Substance: HYDROCHLOROTHIAZIDE\OLMESARTAN MEDOXOMIL
     Indication: HYPERTENSION
     Dosage: ?          QUANTITY:90 TABLET(S);?
     Route: 048
     Dates: start: 20170811, end: 20170812
  3. BENICAR HCT [Concomitant]
     Active Substance: HYDROCHLOROTHIAZIDE\OLMESARTAN MEDOXOMIL
  4. FINASTERIDE. [Concomitant]
     Active Substance: FINASTERIDE
  5. NATURE WAY ^ALIVE^ MEN^S 50+ GUMMY VITAMINS [Concomitant]
  6. VALSARTAN AND HYDROCHLOROTHIAZIDE [Suspect]
     Active Substance: HYDROCHLOROTHIAZIDE\VALSARTAN
     Indication: HYPERTENSION
     Dosage: ?          QUANTITY:90 TABLET(S);?
     Route: 048
     Dates: start: 20170901, end: 20170902
  7. IBUPROFEN. [Concomitant]
     Active Substance: IBUPROFEN
  8. MINOCYCLINE CAPS [Concomitant]
  9. NUTRITION NOW ^B COMPLEX^ GUMMY VITAMINS [Concomitant]
  10. KAL ^CALCIUM CITRATE D-3 1000^ [Concomitant]
  11. GAIA HERBS ^TURMERIC SUPREME^ [Concomitant]

REACTIONS (2)
  - Dizziness [None]
  - Feeling abnormal [None]

NARRATIVE: CASE EVENT DATE: 20170825
